FAERS Safety Report 16743350 (Version 1)
Quarter: 2019Q3

REPORT INFORMATION
  Report Type: Spontaneous
  Country: US (occurrence: US)
  Receive Date: 20190827
  Receipt Date: 20190827
  Transmission Date: 20191005
  Serious: No
  Sender: FDA-Public Use
  Company Number: US-PAREXEL-2019US003882

PATIENT

DRUGS (1)
  1. ELIGARD [Suspect]
     Active Substance: LEUPROLIDE ACETATE
     Indication: PROSTATE CANCER
     Dosage: 22.5 MG, Q3MONTHS (INTENDED)
     Route: 065

REACTIONS (3)
  - Syringe issue [Unknown]
  - Intercepted medication error [Unknown]
  - Product leakage [Unknown]

NARRATIVE: CASE EVENT DATE: 20190418
